FAERS Safety Report 25271498 (Version 3)
Quarter: 2025Q2

REPORT INFORMATION
  Report Type: Spontaneous
  Country: US (occurrence: US)
  Receive Date: 20250506
  Receipt Date: 20250515
  Transmission Date: 20250717
  Serious: No
  Sender: ROCHE
  Company Number: US-ROCHE-10000269063

PATIENT
  Age: 14 Year
  Sex: Male
  Weight: 77.11 kg

DRUGS (2)
  1. HEMLIBRA [Suspect]
     Active Substance: EMICIZUMAB-KXWH
     Indication: Factor VIII deficiency
     Dosage: STRENGTH: 105MG/0.7ML
     Route: 058
     Dates: start: 202207
  2. XYNTHA [Concomitant]
     Active Substance: MOROCTOCOG ALFA

REACTIONS (2)
  - Haemorrhage [Unknown]
  - Spontaneous haemorrhage [Not Recovered/Not Resolved]

NARRATIVE: CASE EVENT DATE: 20250428
